FAERS Safety Report 20814052 (Version 1)
Quarter: 2022Q2

REPORT INFORMATION
  Report Type: Spontaneous
  Country: CN (occurrence: CN)
  Receive Date: 20220511
  Receipt Date: 20220511
  Transmission Date: 20220721
  Serious: Yes (Other)
  Sender: FDA-Public Use
  Company Number: None

PATIENT
  Age: 73 Year
  Sex: Female
  Weight: 56.6 kg

DRUGS (4)
  1. ENOXAPARIN SODIUM [Suspect]
     Active Substance: ENOXAPARIN SODIUM
     Indication: Deep vein thrombosis
     Dosage: 0.4 ML, QD
     Route: 058
     Dates: start: 20220416, end: 20220426
  2. IMRECOXIB [Suspect]
     Active Substance: IMRECOXIB
     Indication: Postoperative analgesia
     Dosage: 0.1 G, BID
     Route: 048
     Dates: start: 20220419, end: 20220426
  3. PIPERACILLIN AND TAZOBACTAM [Concomitant]
     Active Substance: PIPERACILLIN SODIUM\TAZOBACTAM SODIUM
     Indication: Anti-infective therapy
     Dosage: 4.5 G, BID
     Route: 041
     Dates: start: 20220419, end: 20220422
  4. DEXTROSE\SODIUM CHLORIDE [Concomitant]
     Active Substance: DEXTROSE\SODIUM CHLORIDE
     Dosage: 250 ML, BID
     Route: 041
     Dates: start: 20220419, end: 20220422

REACTIONS (2)
  - Melaena [Recovering/Resolving]
  - Haematuria [Recovering/Resolving]

NARRATIVE: CASE EVENT DATE: 20220426
